FAERS Safety Report 10619972 (Version 1)
Quarter: 2014Q4

REPORT INFORMATION
  Report Type: Spontaneous
  Country: US (occurrence: US)
  Receive Date: 20141202
  Receipt Date: 20141202
  Transmission Date: 20150529
  Serious: Yes (Life-Threatening, Other)
  Sender: FDA-Public Use
  Company Number: US-BAYER-2014-173563

PATIENT
  Sex: Female

DRUGS (8)
  1. AVELOX [Suspect]
     Active Substance: MOXIFLOXACIN HYDROCHLORIDE
  2. MAGNEVIST [Suspect]
     Active Substance: GADOPENTETATE DIMEGLUMINE
  3. NEURONTIN [Concomitant]
     Active Substance: GABAPENTIN
  4. TOPRON [Concomitant]
  5. AMLODIPINE BESYLATE. [Concomitant]
     Active Substance: AMLODIPINE BESYLATE
     Indication: HYPERSENSITIVITY
     Dosage: 5 UNK, UNK
  6. DIOVAN [Concomitant]
     Active Substance: VALSARTAN
  7. CIPRO [Suspect]
     Active Substance: CIPROFLOXACIN HYDROCHLORIDE
  8. AMLODIPINE BESYLATE. [Concomitant]
     Active Substance: AMLODIPINE BESYLATE
     Indication: HYPERSENSITIVITY
     Dosage: 10 UNK, UNK

REACTIONS (4)
  - Pharyngeal oedema [None]
  - Dyspnoea [None]
  - Swollen tongue [None]
  - Swelling face [None]
